FAERS Safety Report 20389091 (Version 1)
Quarter: 2022Q1

REPORT INFORMATION
  Report Type: Spontaneous
  Country: NP (occurrence: NP)
  Receive Date: 20220128
  Receipt Date: 20220128
  Transmission Date: 20220424
  Serious: No
  Sender: FDA-Public Use
  Company Number: NP-LUPIN PHARMACEUTICALS INC.-2022-00952

PATIENT
  Age: 36 Year
  Sex: Female

DRUGS (4)
  1. RIFAMPIN [Suspect]
     Active Substance: RIFAMPIN
     Indication: Leprosy
     Dosage: 2 DOSAGE FORM (CAPSULE); ON DAY 1, STRENGTH 300 MG
     Route: 065
  2. CLOFAZIMINE [Suspect]
     Active Substance: CLOFAZIMINE
     Indication: Leprosy
     Dosage: 300 MILLIGRAM; (ON DAY 1: 3 CAPSULES OF CLOFAZIMINE 100MG)
     Route: 065
  3. CLOFAZIMINE [Suspect]
     Active Substance: CLOFAZIMINE
     Dosage: 50 MILLIGRAM, QD (FROM DAY 2-28)
     Route: 065
  4. DAPSONE [Suspect]
     Active Substance: DAPSONE
     Indication: Leprosy
     Dosage: 1 DOSAGE FORM, QD (ON DAY 1-28)
     Route: 065

REACTIONS (2)
  - Type 1 lepra reaction [Recovered/Resolved]
  - Type IV hypersensitivity reaction [Recovered/Resolved]
